FAERS Safety Report 8340429-2 (Version None)
Quarter: 2012Q2

REPORT INFORMATION
  Report Type: 
  Country: None (occurrence: None)
  Receive Date: 20120507
  Receipt Date: 20120507
  Transmission Date: 20120825
  Serious: No
  Sender: FDA-Public Use
  Company Number: None

PATIENT
  Age: 60 Year
  Sex: Female
  Weight: 90.718 kg

DRUGS (4)
  1. MODAFINIL [Suspect]
     Indication: FATIGUE
     Dosage: |DOSAGETEXT: 200||STRENGTH: 200 MG||FREQ: DAILY||ROUTE: ORAL|
     Route: 048
     Dates: start: 20120505, end: 20120507
  2. MODAFINIL [Suspect]
     Indication: MULTIPLE SCLEROSIS
     Dosage: |DOSAGETEXT: 200||STRENGTH: 200 MG||FREQ: DAILY||ROUTE: ORAL|
     Route: 048
     Dates: start: 20120505, end: 20120507
  3. MODAFINIL [Concomitant]
  4. PROVIGIL [Concomitant]

REACTIONS (4)
  - PRODUCT SUBSTITUTION ISSUE [None]
  - SOMNOLENCE [None]
  - PRODUCT QUALITY ISSUE [None]
  - DRUG INEFFECTIVE [None]
